FAERS Safety Report 11635868 (Version 2)
Quarter: 2015Q4

REPORT INFORMATION
  Report Type: Spontaneous
  Country: US (occurrence: US)
  Receive Date: 20151016
  Receipt Date: 20151021
  Transmission Date: 20160304
  Serious: Yes (Other)
  Sender: FDA-Public Use
  Company Number: US-AMGEN-USASP2015107566

PATIENT
  Age: 86 Year
  Sex: Female
  Weight: 69 kg

DRUGS (1)
  1. PROCRIT [Suspect]
     Active Substance: ERYTHROPOIETIN
     Indication: CHRONIC KIDNEY DISEASE
     Dosage: UNK
     Route: 065

REACTIONS (5)
  - Blood creatinine abnormal [Unknown]
  - Neoplasm malignant [Unknown]
  - Blood urea abnormal [Unknown]
  - Unevaluable event [Unknown]
  - Haemoglobin abnormal [Unknown]
